FAERS Safety Report 7416276-2 (Version None)
Quarter: 2011Q2

REPORT INFORMATION
  Report Type: 
  Country: None (occurrence: None)
  Receive Date: 20110414
  Receipt Date: 20110406
  Transmission Date: 20111010
  Serious: Yes (Disabling)
  Sender: FDA-Public Use
  Company Number: B0711988A

PATIENT
  Sex: Male
  Weight: 42.2 kg

DRUGS (7)
  1. TACROLIMUS HYDRATE [Concomitant]
     Indication: IMMUNOSUPPRESSION
     Dosage: 5MG PER DAY
     Route: 065
     Dates: start: 20090723
  2. METHOTREXATE [Concomitant]
     Indication: IMMUNOSUPPRESSION
     Dosage: 7MGM2 PER DAY
     Route: 065
     Dates: start: 20090725, end: 20090730
  3. KYTRIL [Concomitant]
     Dosage: 3MG PER DAY
     Route: 042
     Dates: start: 20090719, end: 20090725
  4. ALKERAN [Suspect]
     Indication: CORD BLOOD TRANSPLANT THERAPY
     Dosage: 40MGM2 PER DAY
     Route: 042
     Dates: start: 20090719, end: 20090720
  5. SOLU-CORTEF [Concomitant]
     Dosage: 100MG PER DAY
     Dates: start: 20090719, end: 20090721
  6. VICCLOX [Concomitant]
     Dosage: 250MG PER DAY
     Route: 042
     Dates: start: 20090719, end: 20090825
  7. FLUDARA [Suspect]
     Indication: CORD BLOOD TRANSPLANT THERAPY
     Dosage: 25MGM2 PER DAY
     Route: 042
     Dates: start: 20090718, end: 20090722

REACTIONS (5)
  - DIARRHOEA [None]
  - C-REACTIVE PROTEIN INCREASED [None]
  - OROPHARYNGEAL PAIN [None]
  - MUCOSAL INFLAMMATION [None]
  - SEPSIS [None]
